FAERS Safety Report 6733060-3 (Version None)
Quarter: 2010Q2

REPORT INFORMATION
  Report Type: 
  Country: None (occurrence: None)
  Receive Date: 20100518
  Receipt Date: 20100507
  Transmission Date: 20101027
  Serious: Yes (Hospitalization)
  Sender: FDA-Public Use
  Company Number: 2006-01400

PATIENT
  Age: 59 Year
  Sex: Male
  Weight: 65 kg

DRUGS (8)
  1. VELCADE [Suspect]
     Indication: T-CELL LYMPHOMA
     Dosage: 2.76 MG, INTRAVENOUS
     Route: 042
     Dates: start: 20060408, end: 20060516
  2. DOXORUBICIN HCL [Suspect]
     Indication: T-CELL LYMPHOMA
     Dosage: 138 MG, INTRAVENOUS
     Route: 042
     Dates: start: 20060408, end: 20060512
  3. CYCLOPHOSPHAMIDE [Suspect]
     Indication: T-CELL LYMPHOMA
     Dosage: 2210 MG, INTRAVENOUS
     Route: 042
     Dates: start: 20060408, end: 20060512
  4. METHOTREXATE [Suspect]
     Indication: T-CELL LYMPHOMA
     Dosage: 15 MG,
     Dates: start: 20060411, end: 20060512
  5. PREDNISONE [Suspect]
     Indication: T-CELL LYMPHOMA
     Dosage: 110 MG, ORAL
     Route: 048
     Dates: start: 20060408, end: 20060516
  6. BLEOMYCIN SULFATE [Suspect]
     Indication: T-CELL LYMPHOMA
     Dosage: 10 MG, INTRAVENOUS
     Route: 042
     Dates: start: 20060408, end: 20060516
  7. GRANOCYTE 13-34 (LENOGRASTIM) INJECTION [Suspect]
     Indication: T-CELL LYMPHOMA
     Dates: start: 20060519, end: 20060530
  8. ELDISINE [Suspect]
     Indication: T-CELL LYMPHOMA
     Dosage: 3.68 MG, INTRAVENOUS
     Route: 042
     Dates: start: 20060408, end: 20060516

REACTIONS (12)
  - ABDOMINAL PAIN UPPER [None]
  - ANAEMIA [None]
  - COUGH [None]
  - DISEASE PROGRESSION [None]
  - FEBRILE NEUTROPENIA [None]
  - LEUKOPENIA [None]
  - LYMPHOMA [None]
  - MUSCULOSKELETAL STIFFNESS [None]
  - PULMONARY HAEMORRHAGE [None]
  - RENAL FAILURE ACUTE [None]
  - SPLENOMEGALY [None]
  - THROMBOCYTOPENIA [None]
